FAERS Safety Report 21990020 (Version 5)
Quarter: 2024Q2

REPORT INFORMATION
  Report Type: Spontaneous
  Country: US (occurrence: US)
  Receive Date: 20230214
  Receipt Date: 20240503
  Transmission Date: 20240716
  Serious: No
  Sender: FDA-Public Use
  Company Number: US-PFIZER INC-PV202300027931

PATIENT
  Age: 35 Year
  Sex: Female

DRUGS (4)
  1. BRAFTOVI [Suspect]
     Active Substance: ENCORAFENIB
     Indication: Malignant melanoma
     Dosage: 75 MG
     Route: 048
  2. BRAFTOVI [Suspect]
     Active Substance: ENCORAFENIB
     Dosage: TAKE 450 MG BY MOUTH ONCE DAILY. TAKE 6 TABS BY MOUTH ONCE DAILY
     Route: 048
  3. MEKTOVI [Suspect]
     Active Substance: BINIMETINIB
     Indication: Malignant melanoma
     Dosage: 15 MG
     Route: 048
  4. MEKTOVI [Suspect]
     Active Substance: BINIMETINIB
     Dosage: TAKE 45 MG BY MOUTH IN THE MORNING AND 45 MG IN THE EVENING. TAKE 3 TABLETS TWICE A DAY
     Route: 048

REACTIONS (3)
  - Pain [Unknown]
  - Bone pain [Unknown]
  - Neoplasm progression [Unknown]
